FAERS Safety Report 7359015-6 (Version None)
Quarter: 2011Q1

REPORT INFORMATION
  Report Type: 
  Country: None (occurrence: None)
  Receive Date: 20110317
  Receipt Date: 20090529
  Transmission Date: 20110831
  Serious: Yes (Death, Other)
  Sender: FDA-Public Use
  Company Number: US-BAYER-200922024NA

PATIENT
  Sex: Female
  Weight: 79.365 kg

DRUGS (16)
  1. TRASYLOL [Suspect]
     Indication: CORONARY ARTERY BYPASS
     Dosage: 200 ML, UNK
     Route: 042
     Dates: start: 20050302, end: 20050302
  2. GLIPIZIDE [Concomitant]
     Dosage: 5 MG, BID
     Route: 048
     Dates: start: 20050101
  3. MAGNESIUM SULFATE [Concomitant]
     Dosage: 2 G, UNK
     Route: 042
     Dates: start: 20050302, end: 20050302
  4. HYZAAR [Concomitant]
     Dosage: 12.5 MG, QD
     Route: 048
     Dates: start: 20020101
  5. LASIX [Concomitant]
     Dosage: 120 MG, UNK
     Route: 042
     Dates: start: 20050304
  6. TRASYLOL [Suspect]
  7. GENTAMICIN [Concomitant]
     Dosage: 80 MG/1000 ML
     Route: 042
     Dates: start: 20050302, end: 20050302
  8. MANNITOL [Concomitant]
     Dosage: 25 MG, UNK
     Route: 042
     Dates: start: 20050302, end: 20050302
  9. TRASYLOL [Suspect]
     Indication: MITRAL VALVE REPAIR
     Dosage: 50 ML/HOUR FOR 4 HOURS
     Route: 042
     Dates: start: 20050302, end: 20050302
  10. VANCOMYCIN [Concomitant]
     Dosage: 1 G, UNK
     Route: 042
     Dates: start: 20050302, end: 20050304
  11. HEPARIN [Concomitant]
     Dosage: 3000 U/300 ML
     Dates: start: 20050302, end: 20050302
  12. BLOOD AND RELATED PRODUCTS [Concomitant]
     Dosage: 1800 ML, UNK
     Route: 042
     Dates: start: 20050302, end: 20050302
  13. ANCEF [Concomitant]
     Dosage: 1 G, UNK
     Dates: start: 20050302, end: 20050302
  14. LIDOCAINE [Concomitant]
     Dosage: 100 MG X 2
     Route: 042
     Dates: start: 20050302, end: 20050302
  15. CARDIOPLEGIA [Concomitant]
     Dosage: 700 ML, UNK
     Route: 042
     Dates: start: 20050302, end: 20050302
  16. LASIX [Concomitant]
     Dosage: UNK
     Route: 042
     Dates: start: 20050223

REACTIONS (9)
  - PAIN [None]
  - ANHEDONIA [None]
  - DEATH [None]
  - RENAL FAILURE [None]
  - ANXIETY [None]
  - INJURY [None]
  - FEAR [None]
  - UNEVALUABLE EVENT [None]
  - DEPRESSION [None]
